FAERS Safety Report 9254213 (Version 2)
Quarter: 2013Q2

REPORT INFORMATION
  Report Type: Report from Study
  Country: CA (occurrence: CA)
  Receive Date: 20130425
  Receipt Date: 20130429
  Transmission Date: 20140414
  Serious: Yes (Hospitalization, Other)
  Sender: FDA-Public Use
  Company Number: PHHY2013CA040322

PATIENT
  Age: 52 Year
  Sex: Male

DRUGS (3)
  1. CLOZARIL [Suspect]
     Indication: SCHIZOPHRENIA, PARANOID TYPE
     Dosage: UNK (VARIABLE 2 TO 6, 25 MG TABLET DAILY, MAXIMUM 125 MG/DAY)
     Route: 048
     Dates: start: 19951111, end: 20130126
  2. HALDOL [Concomitant]
     Dosage: UNK UKN, UNK
     Route: 030
  3. BENZTROPINE [Concomitant]
     Dosage: UNK UKN, UNK
     Route: 030

REACTIONS (4)
  - Blood creatine phosphokinase increased [Unknown]
  - Psychiatric decompensation [Unknown]
  - Agitation [Unknown]
  - Cardiac disorder [Unknown]
